FAERS Safety Report 9948871 (Version 2)
Quarter: 2014Q1

REPORT INFORMATION
  Report Type: Spontaneous
  Country: BR (occurrence: BR)
  Receive Date: 20140304
  Receipt Date: 20140304
  Transmission Date: 20141002
  Serious: Yes (Other)
  Sender: FDA-Public Use
  Company Number: BR-ROCHE-1333548

PATIENT
  Sex: Female
  Weight: 105 kg

DRUGS (11)
  1. ACTEMRA [Suspect]
     Indication: RHEUMATOID ARTHRITIS
     Route: 065
     Dates: start: 20130901
  2. AMYTRIL [Concomitant]
     Dosage: IN THE EVENINGS
     Route: 065
  3. TRAMAL [Concomitant]
     Indication: PAIN
     Route: 065
  4. FOLIC ACID [Concomitant]
     Dosage: ON THURSDAYS
     Route: 065
  5. FLUOXETINE [Concomitant]
     Indication: DEPRESSION
     Dosage: IN THE MORNINGS
     Route: 065
  6. LEVOID [Concomitant]
     Indication: HYPOTHYROIDISM
     Dosage: AT FASTING PERIOD
     Route: 065
  7. CAPTOPRIL [Concomitant]
     Indication: HYPERTENSION
     Route: 065
  8. IBUPROFEN [Concomitant]
     Indication: PAIN
     Route: 065
  9. OMEPRAZOLE [Concomitant]
     Indication: ABDOMINAL PAIN UPPER
     Dosage: ONE TABLET AT FASTING PERIOD
     Route: 065
  10. METHOTREXATE [Concomitant]
     Indication: RHEUMATOID ARTHRITIS
     Dosage: WEDNESDAY
     Route: 065
  11. RAMIPRIL [Concomitant]

REACTIONS (2)
  - Incorrect product storage [Unknown]
  - Cholelithiasis [Unknown]
